FAERS Safety Report 20091951 (Version 2)
Quarter: 2022Q4

REPORT INFORMATION
  Report Type: Spontaneous
  Country: AT (occurrence: AT)
  Receive Date: 20211119
  Receipt Date: 20221003
  Transmission Date: 20230113
  Serious: Yes (Disabling, Other)
  Sender: FDA-Public Use
  Company Number: AT-Accord-234570

PATIENT
  Age: 74 Year
  Sex: Male

DRUGS (21)
  1. BORTEZOMIB [Suspect]
     Active Substance: BORTEZOMIB
     Indication: Light chain disease
     Dosage: UNK (DISCONTINUED AFTER 5 CYCLES)
     Route: 065
     Dates: start: 201604, end: 201607
  2. DEXAMETHASONE [Suspect]
     Active Substance: DEXAMETHASONE
     Indication: Light chain disease
     Dosage: UNK (DISCONTINUED AFTER 5 CYCLES (BORTEZOMIB/DEXAMETHASONE)
     Route: 065
     Dates: start: 201604, end: 201607
  3. DEXAMETHASONE [Suspect]
     Active Substance: DEXAMETHASONE
     Indication: Allogenic stem cell transplantation
     Dosage: DISCONTINUED AFTER 12 CYCLES (LENALIDOMIDE/DEXAMETHASONE)
     Route: 065
     Dates: end: 201707
  4. DEXAMETHASONE [Suspect]
     Active Substance: DEXAMETHASONE
     Indication: Thoracic vertebral fracture
     Dosage: UNK
     Route: 065
     Dates: start: 2011
  5. DEXAMETHASONE [Suspect]
     Active Substance: DEXAMETHASONE
     Indication: Plasma cell myeloma
     Dosage: UNK
     Route: 065
     Dates: start: 201511
  6. LENALIDOMIDE [Suspect]
     Active Substance: LENALIDOMIDE
     Indication: Light chain disease
     Dosage: UNK (12 CYCLES)
     Route: 065
     Dates: end: 201706
  7. LENALIDOMIDE [Suspect]
     Active Substance: LENALIDOMIDE
     Indication: Plasma cell myeloma
     Dosage: UNK
     Route: 065
     Dates: start: 201511
  8. CYCLOPHOSPHAMIDE [Suspect]
     Active Substance: CYCLOPHOSPHAMIDE
     Indication: Plasma cell myeloma
     Dosage: UNK
     Route: 065
     Dates: start: 2011
  9. CYCLOPHOSPHAMIDE [Suspect]
     Active Substance: CYCLOPHOSPHAMIDE
     Indication: Allogenic stem cell transplantation
  10. CYCLOPHOSPHAMIDE [Suspect]
     Active Substance: CYCLOPHOSPHAMIDE
     Indication: Thoracic vertebral fracture
  11. POMALIDOMIDE [Suspect]
     Active Substance: POMALIDOMIDE
     Indication: Plasma cell myeloma
     Dosage: UNK
     Route: 065
  12. NINLARO [Suspect]
     Active Substance: IXAZOMIB CITRATE
     Indication: Plasma cell myeloma
     Dosage: UNK
     Route: 065
  13. SARCLISA [Suspect]
     Active Substance: ISATUXIMAB-IRFC
     Indication: Plasma cell myeloma
     Dosage: UNK
     Route: 065
  14. VELCADE [Suspect]
     Active Substance: BORTEZOMIB
     Indication: Allogenic stem cell transplantation
     Dosage: UNK
     Route: 065
     Dates: start: 2011
  15. VELCADE [Suspect]
     Active Substance: BORTEZOMIB
     Indication: Plasma cell myeloma
  16. VELCADE [Suspect]
     Active Substance: BORTEZOMIB
     Indication: Thoracic vertebral fracture
  17. CARFILZOMIB [Suspect]
     Active Substance: CARFILZOMIB
     Indication: Plasma cell myeloma
     Dosage: UNK
     Route: 065
  18. ASPIRIN [Concomitant]
     Active Substance: ASPIRIN
     Indication: Anticoagulant therapy
     Dosage: UNK
     Route: 065
  19. ZOLEDRONIC ACID [Concomitant]
     Active Substance: ZOLEDRONIC ACID
     Indication: Product used for unknown indication
     Dosage: UNK
     Dates: start: 200609
  20. ZOLEDRONIC ACID [Concomitant]
     Active Substance: ZOLEDRONIC ACID
     Dosage: RESTARTED
     Dates: start: 2015
  21. MELPHALAN [Concomitant]
     Active Substance: MELPHALAN
     Indication: Plasma cell myeloma
     Dosage: UNK
     Route: 065
     Dates: start: 2011

REACTIONS (13)
  - Papilloedema [Unknown]
  - Nervous system disorder [Unknown]
  - Pneumonia [Unknown]
  - Infusion related reaction [Unknown]
  - Anaemia [Unknown]
  - Pulmonary hypertension [Unknown]
  - Polyneuropathy [Not Recovered/Not Resolved]
  - Pulmonary embolism [Unknown]
  - Gait disturbance [Unknown]
  - Thrombocytopenia [Unknown]
  - Deep vein thrombosis [Recovered/Resolved]
  - Adverse event [Unknown]
  - Adverse drug reaction [Unknown]

NARRATIVE: CASE EVENT DATE: 20160101
